FAERS Safety Report 7736752-2 (Version None)
Quarter: 2011Q3

REPORT INFORMATION
  Report Type: 
  Country: None (occurrence: None)
  Receive Date: 20110908
  Receipt Date: 20110901
  Transmission Date: 20111222
  Serious: Yes (Life-Threatening, Hospitalization)
  Sender: FDA-Public Use
  Company Number: PHEH2011US03196

PATIENT

DRUGS (1)
  1. RECLAST [Suspect]
     Dosage: UNK UKN, UNK
     Route: 042
     Dates: start: 20101220

REACTIONS (12)
  - PLATELET COUNT DECREASED [None]
  - ASTHENIA [None]
  - FEELING ABNORMAL [None]
  - HYPERHIDROSIS [None]
  - BONE MARROW FAILURE [None]
  - MALAISE [None]
  - RENAL IMPAIRMENT [None]
  - INFLUENZA [None]
  - BRONCHITIS [None]
  - DYSPNOEA [None]
  - HEPATIC FAILURE [None]
  - PNEUMONIA VIRAL [None]
